FAERS Safety Report 9858283 (Version 2)
Quarter: 2014Q1

REPORT INFORMATION
  Report Type: Spontaneous
  Country: US (occurrence: US)
  Receive Date: 20140131
  Receipt Date: 20140131
  Transmission Date: 20141002
  Serious: Yes (Hospitalization, Other)
  Sender: FDA-Public Use
  Company Number: US-ENDO PHARMACEUTICALS INC.-HYDR20130021

PATIENT
  Sex: Female

DRUGS (1)
  1. HYDROCORTISONE TABLETS 10MG [Suspect]
     Indication: ADRENAL INSUFFICIENCY
     Route: 048
     Dates: start: 2009

REACTIONS (9)
  - Hospitalisation [Unknown]
  - Blindness transient [Unknown]
  - Aphasia [Unknown]
  - Presyncope [Unknown]
  - Weight decreased [Unknown]
  - Fatigue [Unknown]
  - Nausea [Unknown]
  - Headache [Unknown]
  - Drug ineffective [Unknown]
